FAERS Safety Report 15122304 (Version 1)
Quarter: 2018Q3

REPORT INFORMATION
  Report Type: Spontaneous
  Country: IN (occurrence: IN)
  Receive Date: 20180709
  Receipt Date: 20180709
  Transmission Date: 20181010
  Serious: Yes (Hospitalization)
  Sender: FDA-Public Use
  Company Number: IN-MYLANLABS-2018M1048417

PATIENT
  Age: 27 Year
  Sex: Female

DRUGS (1)
  1. CIPROFLOXACIN. [Suspect]
     Active Substance: CIPROFLOXACIN
     Indication: PRODUCT USED FOR UNKNOWN INDICATION
     Dosage: 14 TABLETS OF 500MG
     Route: 048

REACTIONS (3)
  - Intentional overdose [Recovered/Resolved]
  - Crystal nephropathy [Recovered/Resolved]
  - Suicide attempt [Recovered/Resolved]
